FAERS Safety Report 26046546 (Version 1)
Quarter: 2025Q4

REPORT INFORMATION
  Report Type: Spontaneous
  Country: US (occurrence: None)
  Receive Date: 20251113
  Receipt Date: 20251113
  Transmission Date: 20260118
  Serious: No
  Sender: FDA-CTU
  Company Number: None

PATIENT
  Age: 26 Year
  Sex: Female
  Weight: 72 kg

DRUGS (2)
  1. HERBALS\TETRAHYDROCANNABINOL UNSPECIFIED [Suspect]
     Active Substance: HERBALS\TETRAHYDROCANNABINOL UNSPECIFIED
     Indication: Nutritional supplementation
     Dates: start: 20251111, end: 20251111
  2. Lions mane sprouts gummies [Concomitant]

REACTIONS (8)
  - Product advertising issue [None]
  - Product communication issue [None]
  - Product use in unapproved indication [None]
  - Hypoaesthesia [None]
  - Acute psychosis [None]
  - Victim of abuse [None]
  - Sensory disturbance [None]
  - Suspected product tampering [None]

NARRATIVE: CASE EVENT DATE: 20251111
